FAERS Safety Report 4748088-2 (Version None)
Quarter: 2005Q3

REPORT INFORMATION
  Report Type: 
  Country: None (occurrence: None)
  Receive Date: 20050818
  Receipt Date: 20050309
  Transmission Date: 20060218
  Serious: Yes (Hospitalization, Disabling, Other)
  Sender: FDA-Public Use
  Company Number: US-MERCK-0503USA02026

PATIENT
  Age: 65 Year
  Sex: Female
  Weight: 64 kg

DRUGS (4)
  1. VIOXX [Suspect]
     Indication: RHEUMATOID ARTHRITIS
     Route: 048
     Dates: start: 19990801, end: 20040901
  2. TOPROL-XL [Concomitant]
     Route: 065
     Dates: start: 20010101, end: 20050101
  3. CATAPRES [Concomitant]
     Route: 065
     Dates: start: 20040115, end: 20050301
  4. PREMARIN [Concomitant]
     Route: 065
     Dates: start: 19950101

REACTIONS (11)
  - BLADDER DISORDER [None]
  - BLINDNESS UNILATERAL [None]
  - CEREBROVASCULAR ACCIDENT [None]
  - CHEST PAIN [None]
  - CHOLELITHIASIS [None]
  - COUGH [None]
  - EYE DISORDER [None]
  - EYE HAEMORRHAGE [None]
  - GASTROENTERITIS VIRAL [None]
  - HYPERTENSION [None]
  - TOOTH ABSCESS [None]
